FAERS Safety Report 16414440 (Version 3)
Quarter: 2019Q4

REPORT INFORMATION
  Report Type: Spontaneous
  Country: US (occurrence: US)
  Receive Date: 20190611
  Receipt Date: 20191213
  Transmission Date: 20200122
  Serious: Yes (Other)
  Sender: FDA-Public Use
  Company Number: US-PFIZER INC-2019248388

PATIENT
  Age: 57 Year
  Sex: Female

DRUGS (6)
  1. IBRANCE [Suspect]
     Active Substance: PALBOCICLIB
     Dosage: 125 MG, UNK (28-DAY SUPPLY)
     Route: 048
  2. NABUMETONE. [Suspect]
     Active Substance: NABUMETONE
     Indication: PAIN
     Dosage: 750 MG, 2X/DAY
     Dates: start: 201906
  3. LETROZOLE. [Concomitant]
     Active Substance: LETROZOLE
     Dosage: 2.5 MG, 1X/DAY
  4. FEMARA [Suspect]
     Active Substance: LETROZOLE
     Dosage: 2.5 MG, 1X/DAY
     Dates: start: 201809
  5. FLEXERIL [Suspect]
     Active Substance: CYCLOBENZAPRINE HYDROCHLORIDE
     Indication: HYPOTONIA
     Dosage: 10 MG, AS NEEDED (THREE TIMES DAILY AS NEEDED)
     Dates: start: 201906
  6. IBRANCE [Suspect]
     Active Substance: PALBOCICLIB
     Indication: BREAST CANCER
     Dosage: 75 MG, 1X/DAY

REACTIONS (1)
  - Blindness [Recovered/Resolved]
